FAERS Safety Report 14410821 (Version 1)
Quarter: 2018Q1

REPORT INFORMATION
  Report Type: Other
  Country: CA (occurrence: CA)
  Receive Date: 20180119
  Receipt Date: 20180119
  Transmission Date: 20180509
  Serious: Yes (Disabling, Other)
  Sender: FDA-Public Use
  Company Number: CA-APOTEX-2018AP005223

PATIENT
  Age: 64 Year
  Sex: Female

DRUGS (1)
  1. APO-DICLO SR [Suspect]
     Active Substance: DICLOFENAC
     Indication: MUSCULOSKELETAL PAIN
     Dosage: 50 MG, BID
     Route: 048

REACTIONS (3)
  - Visual impairment [Recovered/Resolved]
  - Retinal haemorrhage [Recovered/Resolved]
  - Blindness [Recovered/Resolved]
